FAERS Safety Report 12521022 (Version 13)
Quarter: 2019Q2

REPORT INFORMATION
  Report Type: Spontaneous
  Country: IT (occurrence: IT)
  Receive Date: 20160701
  Receipt Date: 20190604
  Transmission Date: 20190711
  Serious: Yes (Death, Life-Threatening, Hospitalization, Other)
  Sender: FDA-Public Use
  Company Number: IT-SA-2016SA120782

PATIENT
  Age: 82 Year
  Sex: Female

DRUGS (20)
  1. FENTANYL. [Interacting]
     Active Substance: FENTANYL
     Indication: PAIN
     Dosage: 12 UG,QH
     Route: 062
     Dates: start: 20150521, end: 20150528
  2. VANCOMYCIN [Interacting]
     Active Substance: VANCOMYCIN
     Dosage: 500 MG,UNK
     Route: 065
  3. LEVOFLOXACIN. [Interacting]
     Active Substance: LEVOFLOXACIN
     Indication: STAPHYLOCOCCAL SKIN INFECTION
     Dosage: 500 MG,1X
     Route: 048
     Dates: start: 20150521, end: 20150521
  4. FENTANYL. [Interacting]
     Active Substance: FENTANYL
     Indication: ISCHAEMIC LIMB PAIN
     Dosage: 200 UG,UNK
     Route: 048
     Dates: start: 20150101
  5. FENTANYL. [Interacting]
     Active Substance: FENTANYL
     Indication: PROCEDURAL PAIN
     Dosage: 25 UG,QH
     Route: 062
     Dates: start: 20150521
  6. LEVOFLOXACIN. [Interacting]
     Active Substance: LEVOFLOXACIN
     Indication: STAPHYLOCOCCAL INFECTION
     Dosage: 125 MG,QD
     Route: 048
     Dates: start: 20150522
  7. RIFAMPICIN [Interacting]
     Active Substance: RIFAMPIN
     Indication: STAPHYLOCOCCAL INFECTION
     Dosage: 300 MG,QD
     Route: 065
  8. VANCOMYCIN [Interacting]
     Active Substance: VANCOMYCIN
     Dosage: 500 MG,UNK
     Route: 065
     Dates: start: 20150501
  9. VANCOMYCIN [Interacting]
     Active Substance: VANCOMYCIN
     Indication: STAPHYLOCOCCAL SKIN INFECTION
     Dosage: UNK UNK,UNK,BY A SWAB APPLIED TO A LEFT FOOT ULCER POSITIVE FOR STAPHYLOCOCCUS AUREUS
     Route: 061
     Dates: start: 20150101
  10. RIFAMPICIN [Suspect]
     Active Substance: RIFAMPIN
     Indication: STAPHYLOCOCCAL SKIN INFECTION
     Dosage: 300 MG,QD
     Route: 042
     Dates: start: 20150521
  11. FENTANYL. [Interacting]
     Active Substance: FENTANYL
     Indication: PAIN IN EXTREMITY
     Dosage: 200 UG,UNK
     Route: 065
     Dates: start: 20150521
  12. FENTANYL. [Interacting]
     Active Substance: FENTANYL
     Dosage: 25 UG,QH
     Route: 062
     Dates: start: 20150528, end: 20150602
  13. FENTANYL. [Interacting]
     Active Substance: FENTANYL
     Indication: ANGIOPATHY
     Dosage: 100 UG,UNK
     Route: 048
     Dates: start: 20150521
  14. VANCOMYCIN [Interacting]
     Active Substance: VANCOMYCIN
     Dosage: 500 MG,QCY, INJECTION
     Route: 042
     Dates: start: 20150522
  15. LEVOFLOXACIN. [Interacting]
     Active Substance: LEVOFLOXACIN
     Dosage: 125 MG,UNK
     Route: 048
  16. FENTANYL. [Interacting]
     Active Substance: FENTANYL
     Dosage: 25 UG,UNK
     Route: 062
     Dates: start: 20150528, end: 20150602
  17. FENTANYL. [Interacting]
     Active Substance: FENTANYL
     Dosage: 100 UG,UNK,100 MCG 1 TABLET UPGRADEABLE TO 200 MCG.TRANSMUCOSAL ORAL
     Route: 048
     Dates: start: 20150602, end: 20150602
  18. FENTANYL. [Interacting]
     Active Substance: FENTANYL
     Dosage: UNK UNK,UNK
     Dates: start: 20150602, end: 20150602
  19. VANCOMYCIN [Interacting]
     Active Substance: VANCOMYCIN
     Indication: STAPHYLOCOCCAL INFECTION
     Dosage: 1 G,1X, INJECTION
     Route: 042
     Dates: start: 20150521, end: 20150521
  20. VANCOMYCIN [Interacting]
     Active Substance: VANCOMYCIN
     Dosage: 1 G,UNK
     Route: 065

REACTIONS (16)
  - Drug interaction [Unknown]
  - Miosis [Recovered/Resolved]
  - Prescribed overdose [Fatal]
  - Depressed level of consciousness [Recovered/Resolved]
  - Generalised non-convulsive epilepsy [Fatal]
  - Off label use [Unknown]
  - Sopor [Recovered/Resolved]
  - Tremor [Recovered/Resolved]
  - Altered state of consciousness [Recovered/Resolved]
  - Toxicity to various agents [Unknown]
  - Overdose [Unknown]
  - Somnolence [Recovered/Resolved]
  - Status epilepticus [Recovered/Resolved]
  - Therapy naive [Unknown]
  - Drug ineffective [Unknown]
  - Hallucination [Recovered/Resolved]

NARRATIVE: CASE EVENT DATE: 20150206
